FAERS Safety Report 6347024-5 (Version None)
Quarter: 2009Q3

REPORT INFORMATION
  Report Type: 
  Country: None (occurrence: None)
  Receive Date: 20090909
  Receipt Date: 20090909
  Transmission Date: 20100115
  Serious: Yes (Life-Threatening, Hospitalization, Disabling, Other)
  Sender: FDA-Public Use
  Company Number: None

PATIENT
  Age: 51 Year
  Sex: Female
  Weight: 95.2554 kg

DRUGS (4)
  1. YAZ [Suspect]
     Indication: DYSMENORRHOEA
     Dosage: ONE PILL DAILY PO
     Route: 048
     Dates: start: 20090701, end: 20090722
  2. PAXIL [Concomitant]
  3. ROPRINEROL [Concomitant]
  4. MULTI-VITAMINS [Concomitant]

REACTIONS (1)
  - DEEP VEIN THROMBOSIS [None]
